FAERS Safety Report 18941771 (Version 3)
Quarter: 2021Q3

REPORT INFORMATION
  Report Type: Report from Study
  Country: CA (occurrence: CA)
  Receive Date: 20210225
  Receipt Date: 20210729
  Transmission Date: 20211014
  Serious: Yes (Hospitalization, Other)
  Sender: FDA-Public Use
  Company Number: CA-BRISTOL-MYERS SQUIBB COMPANY-BMS-2021-015761

PATIENT
  Age: 44 Year
  Sex: Female

DRUGS (3)
  1. STEROIDS [Concomitant]
     Active Substance: UNSPECIFIED INGREDIENT
     Indication: PRODUCT USED FOR UNKNOWN INDICATION
     Dosage: UNK
     Route: 048
  2. SULFUR. [Concomitant]
     Active Substance: SULFUR
     Indication: PRODUCT USED FOR UNKNOWN INDICATION
     Dosage: UNK
     Route: 065
  3. ABATACEPT [Suspect]
     Active Substance: ABATACEPT
     Indication: RHEUMATOID ARTHRITIS
     Dosage: 1000 MILLIGRAM, Q4WK
     Route: 042
     Dates: start: 20170110

REACTIONS (9)
  - Rheumatoid arthritis [Recovered/Resolved]
  - Diarrhoea [Unknown]
  - Infected bite [Recovered/Resolved]
  - Conjunctivitis [Recovered/Resolved]
  - Wound infection [Recovered/Resolved]
  - Rheumatoid lung [Recovered/Resolved]
  - Heart rate decreased [Unknown]
  - Blood pressure systolic increased [Unknown]
  - Cellulitis [Recovered/Resolved]

NARRATIVE: CASE EVENT DATE: 20210204
